FAERS Safety Report 10798838 (Version 1)
Quarter: 2015Q1

REPORT INFORMATION
  Report Type: Report from Study
  Country: US (occurrence: US)
  Receive Date: 20150216
  Receipt Date: 20150216
  Transmission Date: 20150721
  Serious: No
  Sender: FDA-Public Use
  Company Number: US-ABBVIE-14K-163-1235546-00

PATIENT
  Sex: Female

DRUGS (3)
  1. METFORMIN [Suspect]
     Active Substance: METFORMIN HYDROCHLORIDE
     Indication: BLOOD GLUCOSE INCREASED
     Dates: start: 2014
  2. HUMIRA [Suspect]
     Active Substance: ADALIMUMAB
     Indication: PSORIASIS
     Dosage: TWO INJECTIONS
     Dates: start: 20140415, end: 20140415
  3. HUMIRA [Suspect]
     Active Substance: ADALIMUMAB
     Dosage: ONE INJECTION
     Dates: start: 20140429

REACTIONS (3)
  - Inappropriate schedule of drug administration [Recovered/Resolved]
  - Blood glucose increased [Unknown]
  - Diarrhoea [Unknown]

NARRATIVE: CASE EVENT DATE: 2014
